FAERS Safety Report 8540100 (Version 2)
Quarter: 2013Q3

REPORT INFORMATION
  Report Type: Report from Study
  Country: MX (occurrence: MX)
  Receive Date: 20120502
  Receipt Date: 20130716
  Transmission Date: 20140515
  Serious: Yes (Other)
  Sender: FDA-Public Use
  Company Number: PHHY2012MX036553

PATIENT
  Age: 89 Year
  Sex: Male

DRUGS (8)
  1. EXFORGE [Suspect]
     Indication: HYPERTENSION
     Dosage: 2 DF (160 MG VALS AND 5 MG AMLO), DAILY
     Route: 048
     Dates: start: 201202
  2. SELOKEEN [Concomitant]
  3. PANTOPRAZOLE [Concomitant]
  4. NIMESULIDE [Concomitant]
  5. LEXOTAN [Concomitant]
  6. NOOTROPIL [Concomitant]
  7. KETOROLAC [Concomitant]
  8. CEFUROXIME [Concomitant]

REACTIONS (1)
  - Fall [Not Recovered/Not Resolved]
